FAERS Safety Report 15203832 (Version 1)
Quarter: 2018Q3

REPORT INFORMATION
  Report Type: Spontaneous
  Country: GB (occurrence: GB)
  Receive Date: 20180726
  Receipt Date: 20180726
  Transmission Date: 20181010
  Serious: Yes (Hospitalization)
  Sender: FDA-Public Use
  Company Number: GB-TEVA-2018-GB-929935

PATIENT
  Age: 76 Year
  Sex: Male
  Weight: 76 kg

DRUGS (6)
  1. FUROSEMIDE. [Concomitant]
     Active Substance: FUROSEMIDE
  2. CARBAMAZEPINE. [Suspect]
     Active Substance: CARBAMAZEPINE
     Indication: SEIZURE
     Dosage: 600 MILLIGRAM DAILY;
     Route: 048
  3. APIXABAN [Suspect]
     Active Substance: APIXABAN
     Indication: ATRIAL FIBRILLATION
     Dosage: 5 MILLIGRAM DAILY;
     Route: 048
  4. SPIRONOLACTONE. [Concomitant]
     Active Substance: SPIRONOLACTONE
  5. SIMVASTATIN. [Concomitant]
     Active Substance: SIMVASTATIN
  6. BISOPROLOL FUMARATE. [Concomitant]
     Active Substance: BISOPROLOL FUMARATE

REACTIONS (4)
  - Ischaemic stroke [Recovered/Resolved with Sequelae]
  - Confusional state [Unknown]
  - Contraindicated drug prescribed [Unknown]
  - Drug prescribing error [Unknown]

NARRATIVE: CASE EVENT DATE: 20180619
